FAERS Safety Report 15314913 (Version 1)
Quarter: 2018Q3

REPORT INFORMATION
  Report Type: Spontaneous
  Country: US (occurrence: US)
  Receive Date: 20180815
  Receipt Date: 20180815
  Transmission Date: 20181010
  Serious: Yes (Disabling)
  Sender: FDA-Public Use
  Company Number: None

PATIENT
  Age: 82 Year
  Sex: Male
  Weight: 103.5 kg

DRUGS (11)
  1. PANTOPRAZOLE (PROTONIX IV) [Concomitant]
     Dates: start: 20180503, end: 20180511
  2. VANCOMYCIN 2500 MG IN 500 ML NS [Concomitant]
     Dates: start: 20180503, end: 20180503
  3. D50W [Concomitant]
     Dates: start: 20180503, end: 20180503
  4. POTASSIUM CHLORIDE (IV) [Concomitant]
     Dates: start: 20180503, end: 20180511
  5. NOREPINEPHRINE. [Suspect]
     Active Substance: NOREPINEPHRINE
     Indication: HYPOTENSION
     Dosage: ?          OTHER FREQUENCY:TITRATE TO RESPONS;?
     Route: 041
     Dates: start: 20180503, end: 20180509
  6. ZOSYN 3.375 GRAM [Concomitant]
     Dates: start: 20180503, end: 20180511
  7. LEVOFLOXACIN. [Concomitant]
     Active Substance: LEVOFLOXACIN
     Dates: start: 20180503, end: 20180506
  8. LORAZEPAM. [Concomitant]
     Active Substance: LORAZEPAM
     Dates: start: 20180504, end: 20180504
  9. IPRATROPIUM/ALBUTEROL (DUONEB) [Concomitant]
     Dates: start: 20180503, end: 20180531
  10. SODIUM CHLORIDE 0.9% [Concomitant]
     Active Substance: SODIUM CHLORIDE
     Dates: start: 20180503, end: 20180506
  11. PROPOFOL DRIP [Concomitant]
     Dates: start: 20180503, end: 20180507

REACTIONS (5)
  - Swelling [None]
  - Injection site extravasation [None]
  - Peripheral coldness [None]
  - Blister [None]
  - Compartment syndrome [None]

NARRATIVE: CASE EVENT DATE: 20180504
